FAERS Safety Report 13758380 (Version 1)
Quarter: 2017Q3

REPORT INFORMATION
  Report Type: Spontaneous
  Country: US (occurrence: US)
  Receive Date: 20170717
  Receipt Date: 20170717
  Transmission Date: 20171127
  Serious: No
  Sender: FDA-Public Use
  Company Number: US-PFIZER INC-2017308118

PATIENT
  Age: 58 Year
  Sex: Male

DRUGS (1)
  1. GABAPENTIN. [Suspect]
     Active Substance: GABAPENTIN
     Dosage: 800 MG, 2X/DAY
     Route: 048
     Dates: start: 20170608

REACTIONS (2)
  - Lethargy [Unknown]
  - Drug ineffective [Unknown]
